FAERS Safety Report 6733324-3 (Version None)
Quarter: 2010Q2

REPORT INFORMATION
  Report Type: 
  Country: None (occurrence: None)
  Receive Date: 20100520
  Receipt Date: 20100510
  Transmission Date: 20101027
  Serious: Yes (Other)
  Sender: FDA-Public Use
  Company Number: AU-PFIZER INC-2010058532

PATIENT
  Age: 43 Year
  Sex: Female

DRUGS (7)
  1. EPIRUBICIN HYDROCHLORIDE [Suspect]
     Indication: BREAST CANCER
     Dosage: UNK
     Dates: start: 20091120, end: 20100212
  2. FLUOROURACIL [Suspect]
     Indication: BREAST CANCER
     Dosage: UNK
     Dates: start: 20091120, end: 20100212
  3. CYCLOPHOSPHAMIDE [Suspect]
     Indication: BREAST CANCER
     Dosage: UNK
     Dates: start: 20091120, end: 20100212
  4. TRIPTORELIN [Suspect]
     Indication: BREAST CANCER
     Dosage: 37.5 MG, UNK
     Route: 030
     Dates: start: 20091120, end: 20100212
  5. FLUOXETINE [Concomitant]
  6. RANITIDINE [Concomitant]
  7. ZOLPIDEM [Concomitant]

REACTIONS (1)
  - LIVER DISORDER [None]
